FAERS Safety Report 4700835-1 (Version None)
Quarter: 2005Q2

REPORT INFORMATION
  Report Type: 
  Country: None (occurrence: None)
  Receive Date: 20050628
  Receipt Date: 20050623
  Transmission Date: 20051028
  Serious: Yes (Death)
  Sender: FDA-Public Use
  Company Number: JP-SANOFI-SYNTHELABO-F01200501079

PATIENT
  Sex: Female
  Weight: 40 kg

DRUGS (4)
  1. OXALIPLATIN [Suspect]
     Indication: COLON CANCER
     Dosage: 100MG/BODY=78.7MG/M2 ON DAY 1 AND 2
     Route: 042
     Dates: start: 20050523, end: 20050523
  2. FLUOROURACIL [Suspect]
     Indication: COLON CANCER
     Dosage: 500 MG/M2 IV BOLUS AND 750 MG/M2 IV 22 HOURS CONTINUOUS INFUSION, Q2W
     Route: 040
     Dates: start: 20050523, end: 20050523
  3. FLUOROURACIL [Suspect]
     Dosage: 500 MG/M2 IV BOLUS AND 750 MG/M2 IV 22 HOURS CONTINUOUS INFUSION, Q2W
     Route: 041
     Dates: start: 20050523, end: 20050524
  4. CALCIUM LEVOFOLINATE [Suspect]
     Indication: COLON CANCER
     Dosage: 125MG/BODY=98.4MG/M2
     Route: 041
     Dates: start: 20050523, end: 20050524

REACTIONS (4)
  - DEPRESSED LEVEL OF CONSCIOUSNESS [None]
  - LEUKOPENIA [None]
  - PYREXIA [None]
  - TACHYCARDIA [None]
